FAERS Safety Report 5501085-1 (Version None)
Quarter: 2007Q4

REPORT INFORMATION
  Report Type: 
  Country: None (occurrence: None)
  Receive Date: 20071029
  Receipt Date: 20071017
  Transmission Date: 20080405
  Serious: Yes (Hospitalization)
  Sender: FDA-Public Use
  Company Number: US-PFIZER INC-2007068436

PATIENT
  Sex: Male
  Weight: 144.2 kg

DRUGS (15)
  1. SUTENT [Suspect]
     Indication: METASTATIC RENAL CELL CARCINOMA
     Route: 048
     Dates: start: 20070720, end: 20070815
  2. AMBIEN [Concomitant]
     Route: 048
  3. ASPIRIN [Concomitant]
     Route: 048
  4. COREG [Concomitant]
     Dosage: TEXT:6.25
     Route: 048
  5. BENAZEPRIL HYDROCHLORIDE [Concomitant]
     Route: 048
  6. PLAVIX [Concomitant]
     Route: 048
     Dates: start: 20060808, end: 20070815
  7. LYRICA [Concomitant]
     Route: 048
  8. LASIX [Concomitant]
     Route: 048
  9. LASIX [Concomitant]
     Route: 048
  10. POTASSIUM CHLORIDE [Concomitant]
     Route: 048
  11. ALLOPURINOL [Concomitant]
     Route: 048
  12. GLYBURIDE [Concomitant]
     Route: 048
  13. PRAVASTATIN [Concomitant]
     Route: 048
  14. ACTOS [Concomitant]
     Route: 048
  15. SYNTHROID [Concomitant]
     Route: 048

REACTIONS (1)
  - ORTHOSTATIC HYPOTENSION [None]
